APPROVED DRUG PRODUCT: ZANAFLEX
Active Ingredient: TIZANIDINE HYDROCHLORIDE
Strength: EQ 4MG BASE
Dosage Form/Route: TABLET;ORAL
Application: N020397 | Product #001 | TE Code: AB
Applicant: LEGACY PHARMA USA INC
Approved: Nov 27, 1996 | RLD: Yes | RS: Yes | Type: RX